FAERS Safety Report 8426082-8 (Version None)
Quarter: 2012Q2

REPORT INFORMATION
  Report Type: 
  Country: None (occurrence: None)
  Receive Date: 20120611
  Receipt Date: 20120601
  Transmission Date: 20120825
  Serious: Yes (Hospitalization)
  Sender: FDA-Public Use
  Company Number: DE-ELI_LILLY_AND_COMPANY-DE201206000070

PATIENT
  Sex: Female

DRUGS (2)
  1. CALCIUM [Concomitant]
  2. FORTEO [Suspect]
     Indication: OSTEOPOROSIS
     Dosage: UNK, QD
     Route: 058
     Dates: start: 20101221

REACTIONS (5)
  - DYSPNOEA [None]
  - PYREXIA [None]
  - PNEUMONIA [None]
  - VIRAL UPPER RESPIRATORY TRACT INFECTION [None]
  - EAR INFECTION VIRAL [None]
